FAERS Safety Report 4477692-4 (Version None)
Quarter: 2004Q3

REPORT INFORMATION
  Report Type: 
  Country: None (occurrence: None)
  Receive Date: 20040923
  Receipt Date: 20040720
  Transmission Date: 20050211
  Serious: No
  Sender: FDA-Public Use
  Company Number: USA040773107

PATIENT
  Age: 64 Year
  Sex: Female
  Weight: 43 kg

DRUGS (2)
  1. FORTEO [Suspect]
     Indication: OSTEOPOROSIS
     Dates: start: 20040713
  2. PENICILLIN 9BENZYLPENICILLIN SODIUM) [Concomitant]

REACTIONS (2)
  - MUSCLE CRAMP [None]
  - PAIN [None]
